FAERS Safety Report 9689385 (Version 2)
Quarter: 2013Q4

REPORT INFORMATION
  Report Type: Spontaneous
  Country: US (occurrence: US)
  Receive Date: 20131114
  Receipt Date: 20131119
  Transmission Date: 20140711
  Serious: Yes (Hospitalization)
  Sender: FDA-Public Use
  Company Number: US-BAXTER-2013BAX044307

PATIENT
  Age: 48 Year
  Sex: Male

DRUGS (3)
  1. 0.9% SODIUM CHLORIDE INJECTION [Suspect]
     Indication: HAEMODIALYSIS
     Route: 065
  2. 0.9% SODIUM CHLORIDE INJECTION [Suspect]
     Indication: RENAL FAILURE CHRONIC
  3. COUMADIN [Suspect]
     Indication: HAEMORRHAGE
     Route: 048

REACTIONS (3)
  - Epistaxis [Recovered/Resolved]
  - Dyspnoea [Unknown]
  - Atelectasis [Unknown]
